FAERS Safety Report 7920500-7 (Version None)
Quarter: 2011Q4

REPORT INFORMATION
  Report Type: 
  Country: None (occurrence: None)
  Receive Date: 20111117
  Receipt Date: 20111110
  Transmission Date: 20120403
  Serious: Yes (Hospitalization, Other)
  Sender: FDA-Public Use
  Company Number: PHEH2010US00461

PATIENT
  Sex: Male

DRUGS (23)
  1. ASPIRIN [Concomitant]
  2. HYTRIN [Concomitant]
     Dosage: 2 MG, UNK
  3. NITROGLYCERIN [Concomitant]
     Dosage: 40 MG, UNK
  4. TENORMIN [Concomitant]
     Dosage: 50 MG, BID
  5. GABAPENTIN [Concomitant]
  6. DOCUSATE [Concomitant]
  7. PREDNISONE TAB [Concomitant]
  8. ZOCOR [Concomitant]
  9. ZANTAC [Concomitant]
  10. NIFEREX [Concomitant]
     Dosage: 150 MG, QD
  11. PROCAN [Concomitant]
     Dosage: 1000 MG, BID
  12. ALKERAN [Concomitant]
  13. PLAVIX [Concomitant]
  14. IRON [Concomitant]
  15. ATENOLOL [Concomitant]
  16. LASIX [Concomitant]
  17. FOLIC ACID [Concomitant]
     Dosage: 1 MG, QD
  18. ZOMETA [Suspect]
     Indication: MULTIPLE MYELOMA
  19. TERAZOSIN HCL [Concomitant]
  20. POTASSIUM [Concomitant]
  21. DEMADEX [Concomitant]
     Dosage: 20 MG ONE Q.D. IN THE A.M.
  22. MICRO-K [Concomitant]
     Dosage: 10 MEQ Q.D. IN THE A.M.
  23. CIPRO [Concomitant]

REACTIONS (74)
  - INTERVERTEBRAL DISC PROTRUSION [None]
  - ARTHRITIS [None]
  - CORONARY ARTERY DISEASE [None]
  - ASTHENIA [None]
  - DYSARTHRIA [None]
  - METABOLIC ENCEPHALOPATHY [None]
  - PLEURAL EFFUSION [None]
  - OSTEONECROSIS OF JAW [None]
  - SPINAL COMPRESSION FRACTURE [None]
  - ARTHRALGIA [None]
  - OESOPHAGITIS [None]
  - LOOSE TOOTH [None]
  - CATARACT [None]
  - CHEST PAIN [None]
  - INCONTINENCE [None]
  - APHASIA [None]
  - AORTIC DILATATION [None]
  - PROTEINURIA [None]
  - PNEUMONIA [None]
  - LUMBAR SPINAL STENOSIS [None]
  - HERPES ZOSTER [None]
  - PAIN [None]
  - ANHEDONIA [None]
  - DISABILITY [None]
  - CARDIOMEGALY [None]
  - OSTEOPENIA [None]
  - DYSPNOEA [None]
  - ASTHMA [None]
  - NEUTROPENIA [None]
  - OSTEOLYSIS [None]
  - MYOCARDIAL INFARCTION [None]
  - PHARYNGEAL OEDEMA [None]
  - PATHOLOGICAL FRACTURE [None]
  - RENAL FAILURE [None]
  - SPLENIC GRANULOMA [None]
  - ATELECTASIS [None]
  - ANXIETY [None]
  - GOUT [None]
  - JOINT SWELLING [None]
  - GASTROOESOPHAGEAL REFLUX DISEASE [None]
  - PANCYTOPENIA [None]
  - DYSPHAGIA [None]
  - INTERVERTEBRAL DISC DEGENERATION [None]
  - URINARY TRACT INFECTION [None]
  - ARRHYTHMIA [None]
  - OSTEOMYELITIS [None]
  - PAIN IN JAW [None]
  - CONFUSIONAL STATE [None]
  - THROMBOCYTOPENIA [None]
  - HYPERTENSION [None]
  - DELIRIUM [None]
  - CONSTIPATION [None]
  - PERIPHERAL VASCULAR DISORDER [None]
  - HYPOMAGNESAEMIA [None]
  - INTERVERTEBRAL DISCITIS [None]
  - GENERAL PHYSICAL HEALTH DETERIORATION [None]
  - POST HERPETIC NEURALGIA [None]
  - INFLUENZA [None]
  - EXPOSED BONE IN JAW [None]
  - SINUSITIS [None]
  - HYPERGLYCAEMIA [None]
  - BACTERAEMIA [None]
  - GRANULOMATOUS LIVER DISEASE [None]
  - BACK PAIN [None]
  - BONE LESION [None]
  - SPINAL OSTEOARTHRITIS [None]
  - AORTIC CALCIFICATION [None]
  - GINGIVAL DISORDER [None]
  - ARTERIOSCLEROSIS [None]
  - OSTEOARTHRITIS [None]
  - TENDERNESS [None]
  - ANGINA UNSTABLE [None]
  - HYPOKALAEMIA [None]
  - APLASTIC ANAEMIA [None]
